FAERS Safety Report 19253215 (Version 2)
Quarter: 2021Q2

REPORT INFORMATION
  Report Type: Spontaneous
  Country: NL (occurrence: NL)
  Receive Date: 20210513
  Receipt Date: 20210518
  Transmission Date: 20210717
  Serious: Yes (Disabling)
  Sender: FDA-Public Use
  Company Number: NL-009507513-2105NLD001417

PATIENT
  Age: 14 Month
  Sex: Female
  Weight: 13 kg

DRUGS (3)
  1. NIMENRIX [Suspect]
     Active Substance: CLOSTRIDIUM TETANI TOXOID ANTIGEN (FORMALDEHYDE INACTIVATED)\MENINGOCOCCAL POLYSACCHARIDE VACCINE, GROUPS A, C, Y,W135 COMBINED
     Indication: IMMUNISATION
     Dosage: 1 DOSAGE FORM
     Dates: start: 20191204
  2. M?M?RVAXPRO [Suspect]
     Active Substance: MEASLES VIRUS STRAIN ENDERS^ ATTENUATED EDMONSTON LIVE ANTIGEN\MUMPS VIRUS STRAIN B LEVEL JERYL LYNN LIVE ANTIGEN\RUBELLA VIRUS STRAIN WISTAR RA 27/3 LIVE ANTIGEN
     Indication: IMMUNISATION
     Dosage: 1 DOSAGE FORM
     Dates: start: 20191204
  3. STERILE DILUENT (WATER) [Suspect]
     Active Substance: WATER
     Indication: IMMUNISATION
     Dosage: 0.5 MILLILITER
     Dates: start: 20191204, end: 20191204

REACTIONS (3)
  - Body temperature increased [Recovered/Resolved]
  - Deafness bilateral [Not Recovered/Not Resolved]
  - Listless [Recovered/Resolved]
